FAERS Safety Report 7535311-4 (Version None)
Quarter: 2011Q2

REPORT INFORMATION
  Report Type: 
  Country: None (occurrence: None)
  Receive Date: 20110609
  Receipt Date: 20071226
  Transmission Date: 20111010
  Serious: Yes (Death, Hospitalization, Other)
  Sender: FDA-Public Use
  Company Number: PHHY2007JP00947

PATIENT
  Sex: Male
  Weight: 70 kg

DRUGS (3)
  1. NORVASC [Concomitant]
     Indication: HYPERTENSION
     Dosage: 2.5 MG, UNK
     Route: 048
     Dates: start: 20040218, end: 20040707
  2. DIOVAN [Suspect]
     Indication: HYPERTENSION
     Dosage: 80 MG/DAY
     Route: 048
     Dates: start: 20030917, end: 20040707
  3. IRESSA [Suspect]
     Route: 042

REACTIONS (4)
  - PYREXIA [None]
  - INTERSTITIAL LUNG DISEASE [None]
  - COUGH [None]
  - LUNG NEOPLASM MALIGNANT [None]
